FAERS Safety Report 9119809 (Version 1)
Quarter: 2013Q1

REPORT INFORMATION
  Report Type: Spontaneous
  Country: US (occurrence: US)
  Receive Date: 20130226
  Receipt Date: 20130226
  Transmission Date: 20140127
  Serious: Yes (Hospitalization)
  Sender: FDA-Public Use
  Company Number: US-JNJFOC-20130207383

PATIENT
  Age: 81 Year
  Sex: Male

DRUGS (1)
  1. ZYTIGA [Suspect]
     Indication: NEOPLASM MALIGNANT
     Dosage: 250 MG * 4 TABLETS
     Route: 048
     Dates: start: 20120501

REACTIONS (1)
  - Palpitations [Recovered/Resolved]
